FAERS Safety Report 7426638-5 (Version None)
Quarter: 2011Q2

REPORT INFORMATION
  Report Type: 
  Country: None (occurrence: None)
  Receive Date: 20110415
  Receipt Date: 20110415
  Transmission Date: 20111010
  Serious: Yes (Other)
  Sender: FDA-Public Use
  Company Number: None

PATIENT
  Age: 19 Year
  Sex: Female
  Weight: 51.7 kg

DRUGS (1)
  1. FLEBOGAMMA [Suspect]
     Indication: SECONDARY IMMUNODEFICIENCY
     Dosage: 20 GRAMS ONCE IV
     Route: 042
     Dates: start: 20110331, end: 20110331

REACTIONS (3)
  - BLOOD PRESSURE DECREASED [None]
  - NAUSEA [None]
  - VOMITING [None]
